FAERS Safety Report 21441249 (Version 2)
Quarter: 2022Q4

REPORT INFORMATION
  Report Type: Spontaneous
  Country: KR (occurrence: KR)
  Receive Date: 20221011
  Receipt Date: 20221012
  Transmission Date: 20230112
  Serious: Yes (Death, Other)
  Sender: FDA-Public Use
  Company Number: KR-009507513-2210KOR002438

PATIENT
  Age: 56 Year
  Sex: Female
  Weight: 70.5 kg

DRUGS (1)
  1. PREVYMIS [Suspect]
     Active Substance: LETERMOVIR
     Indication: Antiviral prophylaxis
     Dosage: 480 MILLIGRAMS ONCE DAILY
     Route: 048
     Dates: start: 20210409, end: 20210607

REACTIONS (1)
  - Death [Fatal]

NARRATIVE: CASE EVENT DATE: 20220101
